FAERS Safety Report 18668874 (Version 1)
Quarter: 2020Q4

REPORT INFORMATION
  Report Type: Spontaneous
  Country: DE (occurrence: DE)
  Receive Date: 20201228
  Receipt Date: 20201228
  Transmission Date: 20210114
  Serious: Yes (Other)
  Sender: FDA-Public Use
  Company Number: NVSC2020DE338929

PATIENT
  Sex: Male
  Weight: 105 kg

DRUGS (3)
  1. BISOPROLOL FUMARATE. [Suspect]
     Active Substance: BISOPROLOL FUMARATE
     Indication: CARDIAC DYSFUNCTION
     Dosage: 5 MG, QD(5 MG, PER DAY)
     Route: 065
     Dates: start: 201212
  2. VALSACOR [Suspect]
     Active Substance: VALSARTAN
     Indication: CORONARY ARTERY DISEASE
     Dosage: 160 MG, QD(160 MG, PER DAY)
     Route: 048
     Dates: start: 201212
  3. ACETYLSALICYLIC ACID [Suspect]
     Active Substance: ASPIRIN
     Indication: HAEMODILUTION
     Dosage: 100 MG, QD(100 MG, PER DAY)
     Route: 048
     Dates: start: 201212

REACTIONS (2)
  - Swelling face [Not Recovered/Not Resolved]
  - Pruritus [Not Recovered/Not Resolved]

NARRATIVE: CASE EVENT DATE: 201812
